FAERS Safety Report 7243547-5 (Version None)
Quarter: 2011Q1

REPORT INFORMATION
  Report Type: 
  Country: None (occurrence: None)
  Receive Date: 20110125
  Receipt Date: 20110118
  Transmission Date: 20110831
  Serious: Yes (Other)
  Sender: FDA-Public Use
  Company Number: A0907934A

PATIENT
  Age: 70 Year
  Sex: Female

DRUGS (2)
  1. CAFFEINE [Suspect]
     Route: 065
  2. NICORETTE (MINT) [Suspect]
     Dosage: 2MG UNKNOWN
     Route: 002

REACTIONS (5)
  - HYPERTENSION [None]
  - NICOTINE DEPENDENCE [None]
  - INTENTIONAL DRUG MISUSE [None]
  - LOSS OF CONSCIOUSNESS [None]
  - GENERAL PHYSICAL HEALTH DETERIORATION [None]
